FAERS Safety Report 7141651-3 (Version None)
Quarter: 2010Q4

REPORT INFORMATION
  Report Type: 
  Country: None (occurrence: None)
  Receive Date: 20101126
  Receipt Date: 20101117
  Transmission Date: 20110411
  Serious: Yes (Other)
  Sender: FDA-Public Use
  Company Number: AXC-2010-000272

PATIENT
  Sex: Female

DRUGS (1)
  1. MESALAMINE [Suspect]
     Indication: CROHN'S DISEASE
     Dosage: 2400 MG, QD, ORAL
     Route: 048

REACTIONS (5)
  - COLITIS [None]
  - CONDITION AGGRAVATED [None]
  - CROHN'S DISEASE [None]
  - JC VIRUS INFECTION [None]
  - PANCREATIC ENZYMES INCREASED [None]
